FAERS Safety Report 7434437-3 (Version None)
Quarter: 2011Q2

REPORT INFORMATION
  Report Type: 
  Country: None (occurrence: None)
  Receive Date: 20110425
  Receipt Date: 20110415
  Transmission Date: 20111010
  Serious: Yes (Hospitalization)
  Sender: FDA-Public Use
  Company Number: ES-BRISTOL-MYERS SQUIBB COMPANY-15222722

PATIENT
  Age: 77 Year
  Sex: Male
  Weight: 55 kg

DRUGS (6)
  1. CETUXIMAB [Suspect]
     Indication: HEAD AND NECK CANCER
     Dosage: 400MG/M2ON DY 1 OF CYCLE(LOADING DOSE ON DAY ONE);DOSAGE:250MG/M2/WEEKLY(UNK-UNK),LAST INF:13JUL10.
     Route: 042
     Dates: start: 20100608
  2. CISPLATIN [Suspect]
     Indication: HEAD AND NECK CANCER
     Dosage: RECENT INF:29JUN10.
     Route: 042
     Dates: start: 20100608, end: 20100629
  3. VITAMIN B-12 [Concomitant]
     Indication: PROPHYLAXIS
     Dates: start: 20100525
  4. DEXAMETHASONE [Concomitant]
     Indication: PROPHYLAXIS
     Dates: start: 20100607
  5. FOLIC ACID [Concomitant]
     Indication: PROPHYLAXIS
     Dates: start: 20100525
  6. PEMETREXED [Suspect]
     Indication: HEAD AND NECK CANCER
     Dosage: VIAL,LAST INF:29JUN10.
     Route: 042
     Dates: start: 20100608, end: 20100629

REACTIONS (1)
  - PULMONARY EMBOLISM [None]
